FAERS Safety Report 5714233-5 (Version None)
Quarter: 2008Q2

REPORT INFORMATION
  Report Type: 
  Country: None (occurrence: None)
  Receive Date: 20080423
  Receipt Date: 20070921
  Transmission Date: 20081010
  Serious: No
  Sender: FDA-Public Use
  Company Number: US-KINGPHARMUSA00001-K200701227

PATIENT

DRUGS (4)
  1. SKELAXIN [Suspect]
     Indication: BACK DISORDER
     Dosage: 800 MG, QD
     Route: 048
     Dates: start: 20070919, end: 20070919
  2. SKELAXIN [Suspect]
     Dosage: 800 MG, BID
     Route: 048
     Dates: start: 20070920, end: 20070920
  3. ULTRAM [Concomitant]
     Indication: BACK DISORDER
     Dosage: 1 TAB
     Route: 048
     Dates: start: 20070920
  4. NEXIUM-LIKE MEDICATION [Concomitant]
     Indication: GASTROOESOPHAGEAL REFLUX DISEASE
     Dates: start: 20040101

REACTIONS (6)
  - DIZZINESS [None]
  - NAUSEA [None]
  - NERVOUSNESS [None]
  - PRURITUS [None]
  - RASH [None]
  - SOMNOLENCE [None]
